FAERS Safety Report 17996651 (Version 1)
Quarter: 2020Q3

REPORT INFORMATION
  Report Type: Spontaneous
  Country: US (occurrence: US)
  Receive Date: 20200708
  Receipt Date: 20200708
  Transmission Date: 20201103
  Serious: No
  Sender: FDA-Public Use
  Company Number: US-AMGEN-USASP2020104261

PATIENT
  Age: 72 Year
  Sex: Female

DRUGS (1)
  1. REPATHA [Suspect]
     Active Substance: EVOLOCUMAB
     Indication: HYPERLIPIDAEMIA
     Dosage: 140 MILLIGRAM, QMO
     Route: 065

REACTIONS (3)
  - Accidental exposure to product [Unknown]
  - Injection site bruising [Unknown]
  - Device use error [Unknown]

NARRATIVE: CASE EVENT DATE: 20200625
